FAERS Safety Report 21962557 (Version 4)
Quarter: 2023Q2

REPORT INFORMATION
  Report Type: Report from Study
  Country: US (occurrence: US)
  Receive Date: 20230207
  Receipt Date: 20230628
  Transmission Date: 20230722
  Serious: Yes (Disabling, Other)
  Sender: FDA-Public Use
  Company Number: US-002147023-NVSC2023US022848

PATIENT
  Sex: Male

DRUGS (2)
  1. ENTRESTO [Suspect]
     Active Substance: SACUBITRIL\VALSARTAN
     Indication: Product used for unknown indication
     Dosage: UNK
     Route: 065
     Dates: start: 202210
  2. METOPROLOL [Suspect]
     Active Substance: METOPROLOL
     Indication: Product used for unknown indication
     Dosage: 100 MG
     Route: 065

REACTIONS (8)
  - Haemorrhoids [Not Recovered/Not Resolved]
  - Diabetes mellitus [Unknown]
  - Ejection fraction decreased [Unknown]
  - Hypotension [Unknown]
  - Nasal congestion [Unknown]
  - Fatigue [Unknown]
  - Pollakiuria [Unknown]
  - Weight decreased [Unknown]
